FAERS Safety Report 10482610 (Version 2)
Quarter: 2014Q3

REPORT INFORMATION
  Report Type: Spontaneous
  Country: JP (occurrence: JP)
  Receive Date: 20140929
  Receipt Date: 20140929
  Transmission Date: 20150326
  Serious: Yes (Other)
  Sender: FDA-Public Use
  Company Number: JP-PFIZER INC-2014267011

PATIENT
  Age: 79 Year
  Sex: Male

DRUGS (5)
  1. MIGLITOL [Suspect]
     Active Substance: MIGLITOL
     Dosage: 25 MG, 3X/DAY
     Route: 048
     Dates: start: 20140516, end: 20140517
  2. JANUVIA [Suspect]
     Active Substance: SITAGLIPTIN PHOSPHATE
     Dosage: 50 MG, DAILY
     Route: 048
  3. MIGLITOL [Suspect]
     Active Substance: MIGLITOL
     Dosage: 25 MG, UNK
     Route: 065
  4. MIGLITOL [Suspect]
     Active Substance: MIGLITOL
     Dosage: 25 MG, UNK
     Route: 065
     Dates: start: 20140514, end: 20140514
  5. GLYCORAN [Concomitant]
     Active Substance: GLYCERIN
     Dosage: 500 MG, DAILY

REACTIONS (1)
  - Diarrhoea [Recovered/Resolved]

NARRATIVE: CASE EVENT DATE: 20140514
